FAERS Safety Report 18729003 (Version 1)
Quarter: 2021Q1

REPORT INFORMATION
  Report Type: Spontaneous
  Country: US (occurrence: US)
  Receive Date: 20210111
  Receipt Date: 20210111
  Transmission Date: 20210419
  Serious: Yes (Death, Hospitalization)
  Sender: FDA-Public Use
  Company Number: None

PATIENT
  Age: 74 Year
  Sex: Male
  Weight: 55.7 kg

DRUGS (2)
  1. BAMLANIVIMAB. [Suspect]
     Active Substance: BAMLANIVIMAB
     Indication: COVID-19
     Dosage: ?          OTHER FREQUENCY:ONCE;?
     Route: 041
  2. SEE LIST SUBMITTED WITH PREVIOUS REPORT [Concomitant]

REACTIONS (4)
  - Pyrexia [None]
  - Dyspnoea [None]
  - Pneumonia [None]
  - Blood pressure systolic increased [None]

NARRATIVE: CASE EVENT DATE: 20201211
